FAERS Safety Report 7467374-9 (Version None)
Quarter: 2011Q2

REPORT INFORMATION
  Report Type: 
  Country: None (occurrence: None)
  Receive Date: 20110509
  Receipt Date: 20101216
  Transmission Date: 20111010
  Serious: No
  Sender: FDA-Public Use
  Company Number: US-ALEXION-A201001627

PATIENT
  Sex: Male

DRUGS (4)
  1. INFLUENZA VACCINE [Suspect]
     Dosage: UNK
     Dates: start: 20101101, end: 20101101
  2. SOLIRIS [Suspect]
     Indication: PAROXYSMAL NOCTURNAL HAEMOGLOBINURIA
     Dosage: 900 MG, Q2W
     Route: 042
     Dates: start: 20100519
  3. FOLIC ACID [Concomitant]
     Dosage: UNK
  4. VALTREX [Concomitant]
     Dosage: UNK

REACTIONS (2)
  - MYOSITIS [None]
  - PAIN IN EXTREMITY [None]
